FAERS Safety Report 6607668-X (Version None)
Quarter: 2010Q1

REPORT INFORMATION
  Report Type: 
  Country: None (occurrence: None)
  Receive Date: 20100212
  Receipt Date: 20100129
  Transmission Date: 20100710
  Serious: Yes (Death, Life-Threatening, Hospitalization)
  Sender: FDA-Public Use
  Company Number: THYM-1001266

PATIENT
  Age: 18 Year
  Sex: Male
  Weight: 51 kg

DRUGS (2)
  1. THYMOGLOBULIN [Suspect]
     Indication: APLASTIC ANAEMIA
     Dosage: 3.5 MG/KG, QD, INTRAVENOUS
     Route: 042
     Dates: start: 20090904, end: 20090908
  2. PREDNISOLONE [Concomitant]

REACTIONS (7)
  - DIARRHOEA [None]
  - FEBRILE NEUTROPENIA [None]
  - HOOKWORM INFECTION [None]
  - ORAL HERPES [None]
  - PNEUMONIA FUNGAL [None]
  - SINUSITIS FUNGAL [None]
  - STAPHYLOCOCCAL SEPSIS [None]
